FAERS Safety Report 11269677 (Version 2)
Quarter: 2015Q3

REPORT INFORMATION
  Report Type: Report from Study
  Country: BR (occurrence: BR)
  Receive Date: 20150714
  Receipt Date: 20150812
  Transmission Date: 20151125
  Serious: Yes (Other)
  Sender: FDA-Public Use
  Company Number: PHHY2015BR080953

PATIENT
  Sex: Female
  Weight: 74 kg

DRUGS (1)
  1. ACLASTA [Suspect]
     Active Substance: ZOLEDRONIC ACID
     Indication: OSTEOPOROSIS
     Dosage: 5 MG, UNK
     Route: 042
     Dates: start: 2012, end: 2012

REACTIONS (3)
  - Abdominal distension [Unknown]
  - General physical health deterioration [Recovering/Resolving]
  - Ovarian cyst [Recovering/Resolving]
